FAERS Safety Report 14530396 (Version 2)
Quarter: 2018Q2

REPORT INFORMATION
  Report Type: Spontaneous
  Country: US (occurrence: US)
  Receive Date: 20180214
  Receipt Date: 20180412
  Transmission Date: 20180711
  Serious: Yes (Hospitalization, Other)
  Sender: FDA-Public Use
  Company Number: US-GLAXOSMITHKLINE-US2018GSK024732

PATIENT
  Age: 45 Year
  Sex: Female

DRUGS (5)
  1. REVATIO [Concomitant]
     Active Substance: SILDENAFIL CITRATE
  2. FLOLAN [Suspect]
     Active Substance: EPOPROSTENOL SODIUM
     Dosage: 35 DF, CO
     Route: 042
     Dates: start: 20100825
  3. FLOLAN [Suspect]
     Active Substance: EPOPROSTENOL SODIUM
     Indication: PULMONARY HYPERTENSION
     Dosage: UNK
  4. FLOLAN [Suspect]
     Active Substance: EPOPROSTENOL SODIUM
     Dosage: UNK
  5. FLOLAN [Suspect]
     Active Substance: EPOPROSTENOL SODIUM
     Indication: PULMONARY HYPERTENSION
     Dosage: 35 DF, CO
     Dates: start: 20100825

REACTIONS (6)
  - Dizziness [Unknown]
  - Catheter placement [Unknown]
  - Feeling abnormal [Unknown]
  - Complication associated with device [Unknown]
  - Sluggishness [Unknown]
  - Device dislocation [Unknown]

NARRATIVE: CASE EVENT DATE: 201802
